FAERS Safety Report 23731848 (Version 1)
Quarter: 2024Q2

REPORT INFORMATION
  Report Type: Spontaneous
  Country: US (occurrence: US)
  Receive Date: 20240411
  Receipt Date: 20240411
  Transmission Date: 20240716
  Serious: Yes (Other)
  Sender: FDA-Public Use
  Company Number: US-TARO PHARMACEUTICALS USA INC.-2024TAR00415

PATIENT

DRUGS (2)
  1. IMIQUIMOD [Suspect]
     Active Substance: IMIQUIMOD
     Indication: Product used for unknown indication
     Dosage: OD UNK, JUST ENOUGH TO MAKE A LIGHT FILM,EVERY NIGHT BEFORE BED FIVE DAYS A WEEK, NOT ON THE WEEKEND
     Route: 061
     Dates: start: 20240219, end: 202403
  2. VITAMIN C [Concomitant]
     Active Substance: ASCORBIC ACID
     Indication: Product used for unknown indication
     Dosage: 1500 MG
     Route: 065

REACTIONS (7)
  - Measles [Recovering/Resolving]
  - Application site dryness [Recovering/Resolving]
  - Pain in extremity [Recovering/Resolving]
  - Rash [Recovering/Resolving]
  - Scab [Recovering/Resolving]
  - Pruritus [Recovering/Resolving]
  - Disease progression [Recovering/Resolving]
